FAERS Safety Report 6209432-2 (Version None)
Quarter: 2009Q2

REPORT INFORMATION
  Report Type: 
  Country: None (occurrence: None)
  Receive Date: 20090601
  Receipt Date: 20090522
  Transmission Date: 20091009
  Serious: Yes (Hospitalization)
  Sender: FDA-Public Use
  Company Number: US-ROCHE-631982

PATIENT
  Sex: Female

DRUGS (5)
  1. PEG-INTERFERON ALFA 2A (RO 25-8310) [Suspect]
     Route: 058
     Dates: start: 20090414
  2. RIBAVIRIN [Suspect]
     Route: 048
     Dates: start: 20090414
  3. BLINDED ELTROMBOPAG [Suspect]
     Indication: THROMBOCYTOPENIA
     Route: 048
     Dates: start: 20090414
  4. ELTROMBOPAG [Suspect]
     Indication: THROMBOCYTOPENIA
     Route: 048
     Dates: start: 20090303, end: 20090317
  5. ELTROMBOPAG [Suspect]
     Route: 048
     Dates: start: 20090318, end: 20090413

REACTIONS (2)
  - CHOLECYSTITIS ACUTE [None]
  - PLEURAL EFFUSION [None]
